FAERS Safety Report 4544703-7 (Version None)
Quarter: 2004Q4

REPORT INFORMATION
  Report Type: 
  Country: None (occurrence: None)
  Receive Date: 20041230
  Receipt Date: 20041217
  Transmission Date: 20050328
  Serious: Yes (Hospitalization)
  Sender: FDA-Public Use
  Company Number: S04-FRA-08269-01

PATIENT
  Age: 89 Year
  Sex: Female

DRUGS (5)
  1. CITALOPRAM HYDROBROMIDE [Suspect]
     Indication: DRUG USE FOR UNKNOWN INDICATION
     Dosage: 1 UNK QD; PO
     Route: 048
     Dates: start: 20030121, end: 20030218
  2. LASIX [Suspect]
     Indication: CARDIAC FAILURE
     Dosage: 40 MG QD; PO
     Route: 048
     Dates: start: 20030121, end: 20030218
  3. AUGMENTIN '125' [Suspect]
     Indication: BRONCHITIS
     Dosage: UNK
     Route: 065
     Dates: start: 20030210, end: 20030218
  4. ROCEPHIN [Suspect]
     Indication: BRONCHITIS
     Dosage: 2 G QD; IM
     Route: 030
     Dates: start: 20030210, end: 20030218
  5. DILTIAZEM HYDROCHLORIDE [Suspect]
     Indication: ESSENTIAL HYPERTENSION
     Dosage: 200 MG QD; PO
     Route: 048
     Dates: start: 20030121, end: 20030218

REACTIONS (4)
  - GINGIVAL BLEEDING [None]
  - HAEMATOMA [None]
  - MOUTH HAEMORRHAGE [None]
  - THROMBOCYTOPENIC PURPURA [None]
